FAERS Safety Report 7585574-4 (Version None)
Quarter: 2011Q3

REPORT INFORMATION
  Report Type: 
  Country: None (occurrence: None)
  Receive Date: 20110701
  Receipt Date: 20110620
  Transmission Date: 20111222
  Serious: Yes (Other)
  Sender: FDA-Public Use
  Company Number: US-AMGEN-USASP2011031630

PATIENT
  Age: 76 Year
  Sex: Male

DRUGS (4)
  1. IMMUNE GLOBULIN NOS [Concomitant]
  2. CORTICOSTEROIDS [Concomitant]
  3. PREDNISONE [Concomitant]
     Dosage: 20 MG, QD
  4. NPLATE [Suspect]
     Indication: IDIOPATHIC THROMBOCYTOPENIC PURPURA
     Dates: start: 20110503

REACTIONS (2)
  - NORMOCHROMIC NORMOCYTIC ANAEMIA [None]
  - LEUKOCYTOSIS [None]
